FAERS Safety Report 9121611 (Version 1)
Quarter: 2013Q1

REPORT INFORMATION
  Report Type: Spontaneous
  Country: US (occurrence: US)
  Receive Date: 20130227
  Receipt Date: 20130227
  Transmission Date: 20140127
  Serious: No
  Sender: FDA-Public Use
  Company Number: US-BIOGENIDEC-2013BI016258

PATIENT
  Age: 49 Year
  Sex: Male

DRUGS (1)
  1. TYSABRI [Suspect]
     Indication: MULTIPLE SCLEROSIS
     Route: 042
     Dates: start: 20120621

REACTIONS (8)
  - Disease progression [Not Recovered/Not Resolved]
  - Coordination abnormal [Not Recovered/Not Resolved]
  - Eye disorder [Not Recovered/Not Resolved]
  - Decreased interest [Not Recovered/Not Resolved]
  - Adverse event [Unknown]
  - Headache [Not Recovered/Not Resolved]
  - Malaise [Recovered/Resolved]
  - Multiple sclerosis relapse [Not Recovered/Not Resolved]
